FAERS Safety Report 8419542-7 (Version None)
Quarter: 2012Q2

REPORT INFORMATION
  Report Type: 
  Country: None (occurrence: None)
  Receive Date: 20120607
  Receipt Date: 20120305
  Transmission Date: 20120825
  Serious: No
  Sender: FDA-Public Use
  Company Number: US-BRISTOL-MYERS SQUIBB COMPANY-16436321

PATIENT
  Sex: Male

DRUGS (7)
  1. CHANTIX [Concomitant]
     Dosage: 0.5MGX11,1MGX42,1TAB.5MG DAILY X3DY,0.5MGBIDX4,90DAYS 1MG,1TAB2TIMES DAILY, 180,90 DY FROM 31JAN12
  2. NORVIR [Concomitant]
     Indication: HIV INFECTION
     Dosage: 1 TAB DAILY WITH PREZISTA AND FOOD.
     Dates: start: 20111130
  3. TRUVADA [Concomitant]
     Indication: HIV INFECTION
     Dosage: 1DF=200-300MG
     Dates: start: 20111130
  4. HYDROXYZINE [Concomitant]
     Indication: INSOMNIA
     Dosage: 1 CAPS AT BED TIME
     Dates: start: 20120131
  5. SUSTIVA [Suspect]
  6. BACTRIM [Suspect]
  7. PREZISTA [Concomitant]
     Indication: HIV INFECTION
     Dosage: 2 TABS DAILY WITH NORVIR AND FOOD
     Dates: start: 20111130

REACTIONS (1)
  - DRUG HYPERSENSITIVITY [None]
